FAERS Safety Report 7164880-1 (Version None)
Quarter: 2010Q4

REPORT INFORMATION
  Report Type: 
  Country: None (occurrence: None)
  Receive Date: 20101215
  Receipt Date: 20091214
  Transmission Date: 20110411
  Serious: No
  Sender: FDA-Public Use
  Company Number: US-AMGEN-KDL380288

PATIENT

DRUGS (2)
  1. ENBREL [Suspect]
     Indication: RHEUMATOID ARTHRITIS
     Dosage: 50 MG, QWK
     Route: 058
     Dates: start: 20080711
  2. LEFLUNOMIDE [Concomitant]
     Dosage: 20 MG, QD

REACTIONS (6)
  - ANIMAL SCRATCH [None]
  - IMPAIRED HEALING [None]
  - LIMB INJURY [None]
  - NODULE ON EXTREMITY [None]
  - PAIN IN EXTREMITY [None]
  - RHEUMATOID NODULE [None]
